FAERS Safety Report 19099085 (Version 1)
Quarter: 2021Q2

REPORT INFORMATION
  Report Type: Spontaneous
  Country: PT (occurrence: PT)
  Receive Date: 20210406
  Receipt Date: 20210406
  Transmission Date: 20210717
  Serious: Yes (Death, Other)
  Sender: FDA-Public Use
  Company Number: PT-GILEAD-2020-0494775

PATIENT
  Sex: Male

DRUGS (21)
  1. METFORMIN [Concomitant]
     Active Substance: METFORMIN HYDROCHLORIDE
     Dosage: 1000 MG, QD
  2. AMLODIPINE;INDAPAMIDE;PERINDOPRIL [Concomitant]
     Active Substance: AMLODIPINE\INDAPAMIDE\PERINDOPRIL
  3. FENTANYL. [Concomitant]
     Active Substance: FENTANYL
  4. FUROSEMIDE. [Concomitant]
     Active Substance: FUROSEMIDE
  5. BISACODYL. [Concomitant]
     Active Substance: BISACODYL
  6. METOCLOPRAMIDE. [Concomitant]
     Active Substance: METOCLOPRAMIDE
  7. DOMPERIDONE [Concomitant]
     Active Substance: DOMPERIDONE
  8. VEKLURY [Suspect]
     Active Substance: REMDESIVIR
     Indication: COVID-19 PNEUMONIA
     Dosage: 200 MG, ONCE
     Route: 065
     Dates: start: 20200818, end: 20200818
  9. VEKLURY [Suspect]
     Active Substance: REMDESIVIR
     Indication: RESPIRATORY FAILURE
     Dosage: 100 UNK
     Route: 065
     Dates: start: 20200819
  10. ATORVASTATIN [Concomitant]
     Active Substance: ATORVASTATIN
     Dosage: 20 MG
  11. ENOXAPARIN [Concomitant]
     Active Substance: ENOXAPARIN
  12. PROPOFOL. [Concomitant]
     Active Substance: PROPOFOL
  13. KETAMINE [Concomitant]
     Active Substance: KETAMINE
  14. ALBUMIN [Concomitant]
     Active Substance: ALBUMIN HUMAN
  15. DEXAMETHASONE. [Concomitant]
     Active Substance: DEXAMETHASONE
     Dosage: 4 MG, Q12H
  16. NORADRENALINE (NORPINEPHRINE) [Concomitant]
     Active Substance: NOREPINEPHRINE
  17. MIDAZOLAM. [Concomitant]
     Active Substance: MIDAZOLAM
  18. EMPAGLIFLOZIN;METFORMIN [Concomitant]
     Active Substance: EMPAGLIFLOZIN\METFORMIN HYDROCHLORIDE
  19. PANTOPRAZOLE [Concomitant]
     Active Substance: PANTOPRAZOLE
     Dosage: 40 MG
  20. ROCURONIUM [Concomitant]
     Active Substance: ROCURONIUM BROMIDE
  21. ALTEPLASE. [Concomitant]
     Active Substance: ALTEPLASE

REACTIONS (5)
  - Cardiac dysfunction [Fatal]
  - Coagulopathy [Fatal]
  - COVID-19 [Fatal]
  - Obstructive shock [Fatal]
  - Pulmonary embolism [Fatal]
